FAERS Safety Report 14418910 (Version 4)
Quarter: 2018Q2

REPORT INFORMATION
  Report Type: Spontaneous
  Country: FR (occurrence: FR)
  Receive Date: 20180122
  Receipt Date: 20180508
  Transmission Date: 20180711
  Serious: Yes (Death, Hospitalization, Other)
  Sender: FDA-Public Use
  Company Number: FR-PFIZER INC-2018023894

PATIENT
  Age: 28 Year
  Sex: Male
  Weight: 114 kg

DRUGS (18)
  1. LEPTICUR [Suspect]
     Active Substance: TROPATEPINE HYDROCHLORIDE
     Dosage: 1 DF, 1X/DAY IN THE MORNING
     Route: 048
  2. LOXAPAC /00401801/ [Concomitant]
     Active Substance: LOXAPINE
     Dosage: 50 MG, 1X/DAY
     Route: 048
  3. ALPRAZOLAM. [Suspect]
     Active Substance: ALPRAZOLAM
     Dosage: 0.5 MG, 1X/DAY (QHS) AT BEDTIME
     Route: 048
  4. NOCTAMIDE [Suspect]
     Active Substance: LORMETAZEPAM
     Dosage: 2 MG, UNK
     Route: 048
  5. NOZINAN /00038601/ [Suspect]
     Active Substance: LEVOMEPROMAZINE
     Dosage: 75 MG, UNK
     Route: 048
  6. LOXAPAC /00401801/ [Concomitant]
     Active Substance: LOXAPINE
     Dosage: 100 MG, 3X/DAY
     Route: 048
     Dates: start: 20160517
  7. RAMIPRIL. [Suspect]
     Active Substance: RAMIPRIL
     Dosage: 5 MG, DAILY
     Route: 048
  8. LEPTICUR [Suspect]
     Active Substance: TROPATEPINE HYDROCHLORIDE
     Dosage: 20 MG, 1X/DAY (1 DF IN THE MORNING AND IN THE EVENING)
     Route: 048
  9. CLOZAPINE. [Suspect]
     Active Substance: CLOZAPINE
     Dosage: 1400 MG, DAILY (700 MG, BID 3 TABLETS IN THE MORNING AND 4 TABLETS IN THE EVENING)
     Route: 048
  10. DOLIPRANE [Suspect]
     Active Substance: ACETAMINOPHEN
     Dosage: 2 DF, 1X/DAY IN THE MORNING
     Route: 048
  11. NOCTAMIDE [Suspect]
     Active Substance: LORMETAZEPAM
     Dosage: 2 MG, 1X/DAY HS (AT BEDTIME)
     Route: 048
  12. LOXAPAC /00401801/ [Concomitant]
     Active Substance: LOXAPINE
     Dosage: 50 MG, 2X/DAY
     Route: 048
  13. BISOCE [Suspect]
     Active Substance: BISOPROLOL
     Dosage: 10 MG, UNK
     Route: 048
  14. DOLIPRANE [Suspect]
     Active Substance: ACETAMINOPHEN
     Dosage: 2 DF, 2X/DAY (2 CAPSULES IN THE MORNING AND IN THE EVENING IF NEEDED)
     Route: 048
  15. BISOCE [Suspect]
     Active Substance: BISOPROLOL
     Dosage: 10 MG, 1X/DAY IN THE EVENING
     Route: 048
  16. DOLIPRANE [Suspect]
     Active Substance: ACETAMINOPHEN
     Dosage: 2 DF, AS NEEDED (1X/DAY IN THE EVENING)
     Route: 048
  17. LEPTICUR [Suspect]
     Active Substance: TROPATEPINE HYDROCHLORIDE
     Dosage: 1 DF, 1X/DAY IN THE EVENING (AT BEDTIME)
     Route: 048
  18. LOXAPAC /00401801/ [Concomitant]
     Active Substance: LOXAPINE
     Dosage: 300 MG, 1X/DAY
     Route: 048
     Dates: start: 20160517

REACTIONS (7)
  - Anxiety [Unknown]
  - Alcohol poisoning [Unknown]
  - Hallucination [Unknown]
  - Cardiac septal hypertrophy [Unknown]
  - Toxicity to various agents [Fatal]
  - Completed suicide [Fatal]
  - Cardiac arrest [Fatal]

NARRATIVE: CASE EVENT DATE: 20160407
